FAERS Safety Report 6634135-X (Version None)
Quarter: 2010Q1

REPORT INFORMATION
  Report Type: 
  Country: None (occurrence: None)
  Receive Date: 20100315
  Receipt Date: 20100302
  Transmission Date: 20100710
  Serious: Yes (Hospitalization)
  Sender: FDA-Public Use
  Company Number: US-ELI_LILLY_AND_COMPANY-US201003000961

PATIENT
  Age: 60 Year
  Sex: Male

DRUGS (5)
  1. CYMBALTA [Suspect]
     Dosage: UNK, UNKNOWN
     Route: 065
     Dates: end: 20100211
  2. LAMICTAL CD [Concomitant]
  3. WELLBUTRIN SR [Concomitant]
  4. NEURONTIN [Concomitant]
  5. VIAGRA [Concomitant]

REACTIONS (4)
  - DEPRESSION SUICIDAL [None]
  - INSOMNIA [None]
  - LIBIDO DECREASED [None]
  - SUICIDAL IDEATION [None]
